FAERS Safety Report 16654514 (Version 1)
Quarter: 2019Q3

REPORT INFORMATION
  Report Type: Spontaneous
  Country: DE (occurrence: DE)
  Receive Date: 20190731
  Receipt Date: 20190731
  Transmission Date: 20191004
  Serious: Yes (Congenital Anomaly, Other)
  Sender: FDA-Public Use
  Company Number: DE-PFIZER INC-2019320780

PATIENT
  Sex: Female
  Weight: 2.52 kg

DRUGS (6)
  1. SERTRALINE HCL [Suspect]
     Active Substance: SERTRALINE HYDROCHLORIDE
     Indication: ANXIETY DISORDER
     Dosage: 75 MG TO 50 MG, DAILY
     Route: 064
     Dates: start: 20180124, end: 20180914
  2. LASEA [Concomitant]
     Indication: ANXIETY DISORDER
     Dosage: UNK
     Route: 064
  3. PASCOFLAIR [PASSIFLORA INCARNATA] [Concomitant]
     Indication: RESTLESSNESS
     Dosage: UNK
     Route: 064
  4. DIAZEPAM. [Concomitant]
     Active Substance: DIAZEPAM
     Indication: ANXIETY DISORDER
     Dosage: 2 MG, DAILY
     Route: 064
     Dates: start: 20180129, end: 20180129
  5. LORAZEPAM. [Concomitant]
     Active Substance: LORAZEPAM
     Indication: ANXIETY DISORDER
     Dosage: 0.5 MG, DAILY AS NEEDED
     Route: 064
     Dates: start: 20180124, end: 20180128
  6. BUDESONIDE. [Concomitant]
     Active Substance: BUDESONIDE
     Indication: ASTHMA
     Dosage: UNK
     Route: 064
     Dates: start: 20171222, end: 20180914

REACTIONS (2)
  - Polydactyly [Not Recovered/Not Resolved]
  - Maternal exposure during pregnancy [Not Recovered/Not Resolved]

NARRATIVE: CASE EVENT DATE: 20180914
